FAERS Safety Report 18331418 (Version 1)
Quarter: 2020Q3

REPORT INFORMATION
  Report Type: Spontaneous
  Country: FR (occurrence: FR)
  Receive Date: 20200930
  Receipt Date: 20200930
  Transmission Date: 20201103
  Serious: Yes (Hospitalization)
  Sender: FDA-Public Use
  Company Number: FR-MYLANLABS-2020M1082346

PATIENT
  Age: 75 Year
  Sex: Male
  Weight: 74 kg

DRUGS (2)
  1. CONTRAMAL [Suspect]
     Active Substance: TRAMADOL HYDROCHLORIDE
     Indication: PAIN
     Dosage: INCONNUE
     Route: 048
     Dates: start: 20200817
  2. DICLOFENAC [Suspect]
     Active Substance: DICLOFENAC
     Indication: PAIN
     Dosage: INCONNUE
     Route: 065
     Dates: start: 20200817

REACTIONS (6)
  - Vomiting [Recovered/Resolved]
  - Dysarthria [Recovered/Resolved]
  - Pyrexia [Recovered/Resolved]
  - Hypokalaemia [Recovered/Resolved]
  - Hyponatraemia [Recovered/Resolved]
  - Asthenia [Recovered/Resolved]

NARRATIVE: CASE EVENT DATE: 20200817
